FAERS Safety Report 7955610-1 (Version None)
Quarter: 2011Q4

REPORT INFORMATION
  Report Type: 
  Country: None (occurrence: None)
  Receive Date: 20111202
  Receipt Date: 20111123
  Transmission Date: 20120403
  Serious: Yes (Other)
  Sender: FDA-Public Use
  Company Number: CN-ASTRAZENECA-2011SE71254

PATIENT
  Sex: Female

DRUGS (3)
  1. PROPOFOL [Suspect]
     Indication: ANAESTHESIA
     Dosage: 1.5-2 MG/KG WITH 10 MG/S
     Route: 042
  2. KETAMINE HCL [Suspect]
     Indication: ANAESTHESIA
     Route: 042
  3. FENTANYL [Suspect]
     Indication: ANAESTHESIA
     Dosage: 1 UG/KG WITH RATE OF 10 MG/S
     Route: 042

REACTIONS (2)
  - RESPIRATORY DEPRESSION [None]
  - SENSORIMOTOR DISORDER [None]
